APPROVED DRUG PRODUCT: EMBOLEX
Active Ingredient: DIHYDROERGOTAMINE MESYLATE; HEPARIN SODIUM; LIDOCAINE HYDROCHLORIDE
Strength: 0.5MG/0.7ML;5,000 UNITS/0.7ML;7.46MG/0.7ML
Dosage Form/Route: INJECTABLE;INJECTION
Application: N018885 | Product #002
Applicant: NOVARTIS PHARMACEUTICALS CORP
Approved: Nov 30, 1984 | RLD: No | RS: No | Type: DISCN